FAERS Safety Report 11234719 (Version 10)
Quarter: 2015Q4

REPORT INFORMATION
  Report Type: Report from Study
  Country: CA (occurrence: CA)
  Receive Date: 20150702
  Receipt Date: 20151015
  Transmission Date: 20160304
  Serious: Yes (Death, Hospitalization, Other)
  Sender: FDA-Public Use
  Company Number: PHHY2014CA017265

PATIENT
  Age: 63 Year
  Sex: Female

DRUGS (3)
  1. SANDOSTATIN LAR DEPOT [Suspect]
     Active Substance: OCTREOTIDE ACETATE
     Dosage: 30 MG, QMO (EVERY 4 WEEKS)
     Route: 030
  2. SANDOSTATIN LAR DEPOT [Suspect]
     Active Substance: OCTREOTIDE ACETATE
     Indication: NEUROENDOCRINE TUMOUR
     Dosage: 20 MG, QMO (EVERY 4 WEEKS)
     Route: 030
     Dates: start: 20131213
  3. SANDOSTATIN LAR DEPOT [Suspect]
     Active Substance: OCTREOTIDE ACETATE
     Dosage: 30 MG, EVERY 3 WEEKS
     Route: 030

REACTIONS (38)
  - Death [Fatal]
  - Blood pressure systolic increased [Unknown]
  - Wound [Recovering/Resolving]
  - Asthenia [Unknown]
  - Gastrointestinal infection [Unknown]
  - Emotional disorder [Unknown]
  - Peripheral swelling [Recovered/Resolved]
  - Needle issue [Unknown]
  - Lower limb fracture [Unknown]
  - Balance disorder [Unknown]
  - Joint swelling [Unknown]
  - Wrong technique in product usage process [Unknown]
  - Renal failure [Unknown]
  - Kidney infection [Unknown]
  - Haemoglobin decreased [Not Recovered/Not Resolved]
  - Secretion discharge [Unknown]
  - Disorientation [Unknown]
  - Renal impairment [Unknown]
  - Joint injury [Unknown]
  - Hypersomnia [Unknown]
  - Lymphoedema [Unknown]
  - Abdominal distension [Unknown]
  - Diarrhoea [Unknown]
  - Abdominal discomfort [Unknown]
  - Unresponsive to stimuli [Unknown]
  - Arthralgia [Unknown]
  - Jaundice [Unknown]
  - Arthritis infective [Unknown]
  - Cholecystitis infective [Unknown]
  - Blood pressure decreased [Unknown]
  - Platelet count decreased [Recovered/Resolved]
  - Body temperature decreased [Unknown]
  - Oedema peripheral [Recovering/Resolving]
  - Inappropriate schedule of drug administration [Unknown]
  - Gastrointestinal pain [Unknown]
  - Nausea [Unknown]
  - Product quality issue [Unknown]
  - Off label use [Unknown]

NARRATIVE: CASE EVENT DATE: 20140206
